FAERS Safety Report 6269621-8 (Version None)
Quarter: 2009Q3

REPORT INFORMATION
  Report Type: 
  Country: None (occurrence: None)
  Receive Date: 20090714
  Receipt Date: 20090702
  Transmission Date: 20100115
  Serious: Yes (Death)
  Sender: FDA-Public Use
  Company Number: 2008AL010964

PATIENT
  Age: 82 Year
  Sex: Female

DRUGS (24)
  1. DIGOXIN [Suspect]
     Dosage: 0.25MG, DAILY, PO
     Route: 048
  2. NOVOLOG [Concomitant]
  3. CARAFATE [Concomitant]
  4. PAMELOR [Concomitant]
  5. ZESTRIL [Concomitant]
  6. ZOCOR [Concomitant]
  7. LOPRESSOR [Concomitant]
  8. PREDNISONE TAB [Concomitant]
  9. K-DUR [Concomitant]
  10. PRILOSEC [Concomitant]
  11. ASPIRIN [Concomitant]
  12. KEFLEX [Concomitant]
  13. PERCOCET [Concomitant]
  14. GLUCOPHAGE [Concomitant]
  15. LASIX [Concomitant]
  16. AMBIEN [Concomitant]
  17. FOSAMEX [Concomitant]
  18. POTASSIUM CHLORIDE [Concomitant]
  19. CALCIUM [Concomitant]
  20. NORTIPTYLINE [Concomitant]
  21. BION TEARS [Concomitant]
  22. LISINOPRIL [Concomitant]
  23. METOPROLOL SUCCINATE [Concomitant]
  24. NITROGLYCERIN [Concomitant]

REACTIONS (16)
  - ANHEDONIA [None]
  - ATRIAL FIBRILLATION [None]
  - CARDIAC FAILURE CONGESTIVE [None]
  - CONTUSION [None]
  - ECONOMIC PROBLEM [None]
  - EMOTIONAL DISORDER [None]
  - ENTEROCOLITIS INFECTIOUS [None]
  - FALL [None]
  - HEART RATE IRREGULAR [None]
  - HYPERHIDROSIS [None]
  - INJURY [None]
  - MENTAL DISORDER [None]
  - PAIN [None]
  - SEPSIS [None]
  - SOCIAL AVOIDANT BEHAVIOUR [None]
  - UNEVALUABLE EVENT [None]
